FAERS Safety Report 15724536 (Version 1)
Quarter: 2018Q4

REPORT INFORMATION
  Report Type: Spontaneous
  Country: CA (occurrence: CA)
  Receive Date: 20181214
  Receipt Date: 20181214
  Transmission Date: 20190205
  Serious: Yes (Disabling, Other)
  Sender: FDA-Public Use
  Company Number: CA-JNJFOC-20181209334

PATIENT
  Age: 56 Year
  Sex: Female

DRUGS (3)
  1. TREMFYA [Suspect]
     Active Substance: GUSELKUMAB
     Indication: PRODUCT USED FOR UNKNOWN INDICATION
     Dosage: 1ML PREFILLED SYRINGE
     Route: 058
  2. DUPIXENT [Suspect]
     Active Substance: DUPILUMAB
     Indication: DERMATITIS ATOPIC
     Dosage: 2ML PREFILLED SYRINGE
     Route: 058
  3. DUPIXENT [Suspect]
     Active Substance: DUPILUMAB
     Indication: DERMATITIS ATOPIC
     Dosage: 2ML PREFILLED SYRINGE
     Route: 058

REACTIONS (4)
  - Erythema [Recovering/Resolving]
  - Dry skin [Recovering/Resolving]
  - Loss of personal independence in daily activities [Recovering/Resolving]
  - Burns third degree [Recovering/Resolving]
